FAERS Safety Report 19075678 (Version 2)
Quarter: 2021Q2

REPORT INFORMATION
  Report Type: Spontaneous
  Country: DE (occurrence: DE)
  Receive Date: 20210330
  Receipt Date: 20210407
  Transmission Date: 20210717
  Serious: Yes (Life-Threatening, Hospitalization)
  Sender: FDA-Public Use
  Company Number: DE-BFARM-21002620

PATIENT
  Age: 57 Year
  Sex: Male

DRUGS (9)
  1. VERAPAMIL [Suspect]
     Active Substance: VERAPAMIL HYDROCHLORIDE
     Dosage: 80 MG, 1?0?0?1, TABLETTEN
     Route: 048
  2. OMEPRAZOL [Concomitant]
     Active Substance: OMEPRAZOLE
     Dosage: 40 MG, 1?0?0?0, TABLETTEN
     Route: 048
  3. DUAKLIR GENUAIR 340MIKROGRAMM/12MIKROGRAMM [Concomitant]
     Dosage: 340|12 +#181;G, 1?0?1?0, DOSIERAEROSOL
     Route: 055
  4. AMLODIPIN [Suspect]
     Active Substance: AMLODIPINE BESYLATE
     Dosage: 5 MG, 1?0?0?0, TABLETTEN
     Route: 048
  5. SALBUTAMOL [Concomitant]
     Active Substance: ALBUTEROL
     Dosage: 0.1 MG, 1?1?1?0, DOSIERAEROSOL
     Route: 055
  6. ALLOPURINOL. [Suspect]
     Active Substance: ALLOPURINOL
     Dosage: 300 MG, 1?0?0?0, TABLETTEN
     Route: 048
  7. BISOPROLOL [Suspect]
     Active Substance: BISOPROLOL
     Dosage: 2.5 MG, 1?0?0?0, TABLETTEN
     Route: 048
  8. RAMIPRIL. [Suspect]
     Active Substance: RAMIPRIL
     Dosage: 5 MG, 1?0?0?0, TABLETTEN
     Route: 048
  9. DICLOFENAC [Suspect]
     Active Substance: DICLOFENAC
     Dosage: 75 MG, 1?0?1?0, TABLETTEN
     Route: 048

REACTIONS (3)
  - Condition aggravated [Unknown]
  - General physical health deterioration [Unknown]
  - Electrolyte imbalance [Unknown]
